FAERS Safety Report 9360390 (Version 1)
Quarter: 2013Q2

REPORT INFORMATION
  Report Type: Spontaneous
  Country: US (occurrence: US)
  Receive Date: 20130621
  Receipt Date: 20130621
  Transmission Date: 20140414
  Serious: No
  Sender: FDA-Public Use
  Company Number: US-US-EMD SERONO, INC.-7024727

PATIENT
  Sex: Female
  Weight: 113 kg

DRUGS (1)
  1. REBIF [Suspect]
     Indication: PRODUCT USED FOR UNKNOWN INDICATION
     Route: 058
     Dates: start: 20100611

REACTIONS (7)
  - Haemoglobin increased [Recovering/Resolving]
  - Blood glucose increased [Unknown]
  - Spinal column stenosis [Unknown]
  - Nerve compression [Unknown]
  - Injection site erythema [Unknown]
  - Injection site pain [Unknown]
  - Pain [Unknown]
